FAERS Safety Report 9734615 (Version 3)
Quarter: 2014Q1

REPORT INFORMATION
  Report Type: Spontaneous
  Country: VE (occurrence: VE)
  Receive Date: 20131206
  Receipt Date: 20140101
  Transmission Date: 20141002
  Serious: Yes (Death, Other)
  Sender: FDA-Public Use
  Company Number: VE-AMGEN-VENSP2013062577

PATIENT
  Age: 76 Year
  Sex: Female

DRUGS (3)
  1. VECTIBIX [Suspect]
     Indication: COLON CANCER METASTATIC
     Dosage: UNK
     Route: 058
     Dates: start: 20130813, end: 201309
  2. VECTIBIX [Suspect]
     Indication: METASTASES TO LIVER
  3. XELODA [Concomitant]
     Dosage: UNK

REACTIONS (7)
  - Abasia [Unknown]
  - Aphasia [Unknown]
  - General physical health deterioration [Unknown]
  - Respiratory arrest [Fatal]
  - Paraesthesia [Unknown]
  - Abdominal discomfort [Unknown]
  - Blood urine present [Unknown]
